FAERS Safety Report 8302240-8 (Version None)
Quarter: 2012Q2

REPORT INFORMATION
  Report Type: 
  Country: None (occurrence: None)
  Receive Date: 20120420
  Receipt Date: 20120412
  Transmission Date: 20120825
  Serious: Yes (Other)
  Sender: FDA-Public Use
  Company Number: FR-B.I. PHARMACEUTICALS,INC./RIDGEFIELD-2012-FF-00450FF

PATIENT
  Sex: Female

DRUGS (1)
  1. PRAMIPEXOLE DIHYDROCHLORIDE [Suspect]
     Indication: PARKINSON'S DISEASE
     Dosage: 3.25 MG
     Route: 048
     Dates: start: 20050901, end: 20110601

REACTIONS (5)
  - HYPERSEXUALITY [None]
  - STEREOTYPY [None]
  - IMPULSE-CONTROL DISORDER [None]
  - COMPULSIVE SHOPPING [None]
  - EATING DISORDER [None]
